FAERS Safety Report 13891421 (Version 5)
Quarter: 2017Q3

REPORT INFORMATION
  Report Type: Spontaneous
  Country: US (occurrence: US)
  Receive Date: 20170822
  Receipt Date: 20170926
  Transmission Date: 20171127
  Serious: Yes (Hospitalization)
  Sender: FDA-Public Use
  Company Number: PHHY2017US121056

PATIENT
  Age: 70 Year
  Sex: Male
  Weight: 73.16 kg

DRUGS (8)
  1. BSS [Suspect]
     Active Substance: CALCIUM CHLORIDE\MAGNESIUM CHLORIDE\POTASSIUM CHLORIDE\SODIUM ACETATE\SODIUM CHLORIDE\SODIUM CITRATE
     Indication: EYE IRRIGATION
     Dosage: UNK
     Route: 031
     Dates: start: 20170405
  2. CEFTAZIDIME. [Suspect]
     Active Substance: CEFTAZIDIME
     Indication: PRODUCT USED FOR UNKNOWN INDICATION
     Dosage: UNK
     Route: 031
     Dates: start: 20170406
  3. PROVISC [Concomitant]
     Indication: PRODUCT USED FOR UNKNOWN INDICATION
     Route: 047
  4. VANCOMYCIN [Suspect]
     Active Substance: VANCOMYCIN
     Indication: PRODUCT USED FOR UNKNOWN INDICATION
     Dosage: UNK
     Route: 031
     Dates: start: 20170406
  5. TETRAVISC [Concomitant]
     Active Substance: TETRACAINE HYDROCHLORIDE
     Indication: PREOPERATIVE CARE
     Route: 047
  6. TROPICAMIDE. [Concomitant]
     Active Substance: TROPICAMIDE
     Indication: PREOPERATIVE CARE
     Route: 047
  7. PHENYLEPHRINE [Concomitant]
     Active Substance: PHENYLEPHRINE\PHENYLEPHRINE HYDROCHLORIDE
     Indication: PRODUCT USED FOR UNKNOWN INDICATION
     Route: 065
  8. BETADINE [Suspect]
     Active Substance: POVIDONE-IODINE
     Indication: PREOPERATIVE CARE
     Route: 047

REACTIONS (1)
  - Endophthalmitis [Recovered/Resolved]

NARRATIVE: CASE EVENT DATE: 20170406
